FAERS Safety Report 10956571 (Version 1)
Quarter: 2015Q1

REPORT INFORMATION
  Report Type: Spontaneous
  Country: None (occurrence: None)
  Receive Date: 20150325
  Receipt Date: 20150325
  Transmission Date: 20150721
  Serious: Yes (Life-Threatening, Hospitalization, Other)
  Sender: FDA-Public Use
  Company Number: None

PATIENT
  Age: 37 Year
  Sex: Male
  Weight: 217.27 kg

DRUGS (2)
  1. CLOZAPINE. [Suspect]
     Active Substance: CLOZAPINE
     Indication: BIPOLAR DISORDER
     Dosage: 2 WEEKS PRIOR TO 3/20/15
     Route: 048
  2. DEPAKOTE [Concomitant]
     Active Substance: DIVALPROEX SODIUM

REACTIONS (10)
  - Myocarditis [None]
  - Hepatitis acute [None]
  - Systemic inflammatory response syndrome [None]
  - Tachycardia [None]
  - Pneumonia [None]
  - Electrocardiogram abnormal [None]
  - Splenomegaly [None]
  - Pyrexia [None]
  - Hypoxia [None]
  - Troponin increased [None]

NARRATIVE: CASE EVENT DATE: 20150319
